FAERS Safety Report 13995062 (Version 2)
Quarter: 2017Q4

REPORT INFORMATION
  Report Type: Spontaneous
  Country: FR (occurrence: FR)
  Receive Date: 20170921
  Receipt Date: 20171003
  Transmission Date: 20180321
  Serious: Yes (Other)
  Sender: FDA-Public Use
  Company Number: FR-MERCK KGAA-2027051

PATIENT
  Age: 34 Year
  Sex: Female

DRUGS (1)
  1. NOVOTHYROX [Suspect]
     Active Substance: LEVOTHYROXINE SODIUM
     Indication: THYROIDECTOMY
     Route: 048
     Dates: start: 201705

REACTIONS (9)
  - Palpitations [None]
  - Fatigue [Not Recovered/Not Resolved]
  - Product formulation issue [Not Recovered/Not Resolved]
  - Gastrointestinal pain [None]
  - Abdominal pain [None]
  - Irritability [Not Recovered/Not Resolved]
  - Diarrhoea [None]
  - Weight increased [Not Recovered/Not Resolved]
  - Vertigo [None]

NARRATIVE: CASE EVENT DATE: 201706
